FAERS Safety Report 19817405 (Version 1)
Quarter: 2021Q3

REPORT INFORMATION
  Report Type: Report from Study
  Country: US (occurrence: US)
  Receive Date: 20210910
  Receipt Date: 20210910
  Transmission Date: 20211014
  Serious: Yes (Death, Life-Threatening, Hospitalization, Disabling, Other)
  Sender: FDA-Public Use
  Company Number: US-GILEAD-2021-0534340

PATIENT
  Age: 68 Year
  Sex: Male

DRUGS (48)
  1. BENZONATATE. [Concomitant]
     Active Substance: BENZONATATE
  2. INSULIN [Concomitant]
     Active Substance: INSULIN NOS
  3. NOREPINEPHRINE BITARTRATE. [Concomitant]
     Active Substance: NOREPINEPHRINE BITARTRATE
  4. AMIODARONE [Concomitant]
     Active Substance: AMIODARONE
  5. FUROSEMIDE. [Concomitant]
     Active Substance: FUROSEMIDE
  6. ROCURONIUM [Concomitant]
     Active Substance: ROCURONIUM BROMIDE
  7. OMEPRAZOLE. [Concomitant]
     Active Substance: OMEPRAZOLE
  8. METHYLPREDNISOLONE. [Concomitant]
     Active Substance: METHYLPREDNISOLONE
  9. VANCOMYCIN [Concomitant]
     Active Substance: VANCOMYCIN
  10. VASOPRESSIN. [Concomitant]
     Active Substance: VASOPRESSIN
  11. MAGNESIUM SULFATE. [Concomitant]
     Active Substance: MAGNESIUM SULFATE
  12. METOPROLOL TARTRATE. [Concomitant]
     Active Substance: METOPROLOL TARTRATE
  13. DIPHENHYDRAMINE HYDROCHLORIDE. [Concomitant]
     Active Substance: DIPHENHYDRAMINE HYDROCHLORIDE
  14. HYDROMORPHONE HYDROCHLORIDE. [Concomitant]
     Active Substance: HYDROMORPHONE HYDROCHLORIDE
  15. OXYCODONE [Concomitant]
     Active Substance: OXYCODONE
  16. REMDESIVIR. [Suspect]
     Active Substance: REMDESIVIR
     Indication: COVID-19
     Dosage: UNK, QD
     Route: 042
     Dates: start: 20210524
  17. PLACEBO [Suspect]
     Active Substance: UNSPECIFIED INGREDIENT
     Indication: COVID-19
     Dosage: UNK, ONCE
     Route: 042
     Dates: start: 20210523
  18. AZITHROMYCIN ANHYDROUS. [Concomitant]
     Active Substance: AZITHROMYCIN ANHYDROUS
  19. GUAIFENESIN. [Concomitant]
     Active Substance: GUAIFENESIN
  20. DILTIAZEM. [Concomitant]
     Active Substance: DILTIAZEM
  21. FAMOTIDINE. [Concomitant]
     Active Substance: FAMOTIDINE
  22. LORAZEPAM. [Concomitant]
     Active Substance: LORAZEPAM
  23. MIDAZOLAM. [Concomitant]
     Active Substance: MIDAZOLAM
  24. QUETIAPINE. [Concomitant]
     Active Substance: QUETIAPINE
  25. BLINDED ABATACEPT [Suspect]
     Active Substance: ABATACEPT
     Indication: COVID-19
     Dosage: UNK, ONCE
     Route: 042
     Dates: start: 20210523
  26. ACETYLSALICYLIC ACID [Concomitant]
     Active Substance: ASPIRIN
  27. CEFTRIAXONE. [Concomitant]
     Active Substance: CEFTRIAXONE
  28. IPRATROPIUM BROMIDE. [Concomitant]
     Active Substance: IPRATROPIUM BROMIDE
  29. SENNOSIDE A+B [Concomitant]
     Active Substance: SENNOSIDES A AND B
  30. PARACETAMOL [Concomitant]
     Active Substance: ACETAMINOPHEN
  31. ALBUMIN HUMAN [Concomitant]
     Active Substance: ALBUMIN HUMAN
  32. CEFEPIME HYDROCHLORIDE. [Concomitant]
     Active Substance: CEFEPIME HYDROCHLORIDE
  33. DEXAMETHASONE. [Concomitant]
     Active Substance: DEXAMETHASONE
  34. HYDRALAZINE [Concomitant]
     Active Substance: HYDRALAZINE HYDROCHLORIDE
  35. MACROGOL 3350 [Concomitant]
     Active Substance: POLYETHYLENE GLYCOL 3350
  36. PROPOFOL. [Concomitant]
     Active Substance: PROPOFOL
  37. DULAGLUTIDE. [Concomitant]
     Active Substance: DULAGLUTIDE
  38. GLUCAGON. [Concomitant]
     Active Substance: GLUCAGON
  39. HEPARIN SODIUM;SODIUM CHLORIDE [Concomitant]
     Active Substance: HEPARIN SODIUM\SODIUM CHLORIDE
  40. FENTANYL. [Concomitant]
     Active Substance: FENTANYL
  41. LOSARTAN. [Concomitant]
     Active Substance: LOSARTAN
  42. METFORMIN [Concomitant]
     Active Substance: METFORMIN HYDROCHLORIDE
  43. SALBUTAMOL [Concomitant]
     Active Substance: ALBUTEROL
  44. CISATRACURIUM BESILATE [Concomitant]
     Active Substance: CISATRACURIUM BESYLATE
  45. ETOMIDATE. [Concomitant]
     Active Substance: ETOMIDATE
  46. KETAMINE [Concomitant]
     Active Substance: KETAMINE
  47. MEROPENEM. [Concomitant]
     Active Substance: MEROPENEM
  48. RIVAROXABAN [Concomitant]
     Active Substance: RIVAROXABAN

REACTIONS (4)
  - Hypoxia [Fatal]
  - Pneumonia serratia [Recovered/Resolved]
  - Anaphylactic reaction [Recovered/Resolved]
  - Acute kidney injury [Not Recovered/Not Resolved]

NARRATIVE: CASE EVENT DATE: 20210523
